FAERS Safety Report 5903198-9 (Version None)
Quarter: 2008Q3

REPORT INFORMATION
  Report Type: 
  Country: None (occurrence: None)
  Receive Date: 20080930
  Receipt Date: 20080922
  Transmission Date: 20090109
  Serious: Yes (Hospitalization, Other)
  Sender: FDA-Public Use
  Company Number: US-BRISTOL-MYERS SQUIBB COMPANY-14338586

PATIENT
  Age: 51 Year
  Sex: Female
  Weight: 57 kg

DRUGS (1)
  1. IXABEPILONE [Suspect]
     Indication: BREAST CANCER METASTATIC
     Dosage: DATE OF INITIAL DOSE 21JUL08.
     Route: 042
     Dates: start: 20080916, end: 20080916

REACTIONS (3)
  - HYPERKALAEMIA [None]
  - HYPONATRAEMIA [None]
  - RENAL FAILURE ACUTE [None]
